FAERS Safety Report 7236637-4 (Version None)
Quarter: 2011Q1

REPORT INFORMATION
  Report Type: 
  Country: None (occurrence: None)
  Receive Date: 20110120
  Receipt Date: 20110111
  Transmission Date: 20110831
  Serious: No
  Sender: FDA-Public Use
  Company Number: US-B.I. PHARMACEUTICALS,INC./RIDGEFIELD-2011-BP-01120BP

PATIENT
  Age: 68 Year
  Sex: Female

DRUGS (4)
  1. AGGRENOX [Concomitant]
     Indication: PROPHYLAXIS
  2. PRADAXA [Suspect]
     Indication: DEEP VEIN THROMBOSIS
  3. PRADAXA [Suspect]
     Indication: ATRIAL FIBRILLATION
     Dosage: 300 MG
     Route: 048
     Dates: start: 20101101, end: 20110110
  4. DEPAKOTE [Concomitant]
     Indication: MIGRAINE

REACTIONS (1)
  - ALOPECIA [None]
